FAERS Safety Report 25746765 (Version 1)
Quarter: 2025Q3

REPORT INFORMATION
  Report Type: Report from Study
  Country: JP (occurrence: JP)
  Receive Date: 20250901
  Receipt Date: 20250901
  Transmission Date: 20251020
  Serious: Yes (Other)
  Sender: Haleon PLC
  Company Number: JP-HALEON-2179441

PATIENT
  Age: 40 Year
  Sex: Female
  Weight: 79.25 kg

DRUGS (3)
  1. ALLI [Suspect]
     Active Substance: ORLISTAT
     Indication: Product used for unknown indication
     Route: 048
     Dates: start: 20240418
  2. LOXOPROFEN SODIUM [Concomitant]
     Active Substance: LOXOPROFEN SODIUM
     Indication: Toothache
  3. LOXOPROFEN [Concomitant]
     Active Substance: LOXOPROFEN
     Indication: Toothache

REACTIONS (4)
  - Empyema [Recovered/Resolved]
  - Nasopharyngitis [Recovered/Resolved]
  - Pyrexia [Recovered/Resolved]
  - Physical deconditioning [Unknown]

NARRATIVE: CASE EVENT DATE: 20240423
